FAERS Safety Report 24538203 (Version 3)
Quarter: 2025Q2

REPORT INFORMATION
  Report Type: Spontaneous
  Country: JP (occurrence: JP)
  Receive Date: 20241023
  Receipt Date: 20250501
  Transmission Date: 20250716
  Serious: Yes (Hospitalization, Other)
  Sender: GLAXOSMITHKLINE
  Company Number: JP-GSKJP-JP2024JPN126983AA

PATIENT

DRUGS (8)
  1. DAPRODUSTAT [Suspect]
     Active Substance: DAPRODUSTAT
     Indication: Nephrogenic anaemia
  2. DAPRODUSTAT [Suspect]
     Active Substance: DAPRODUSTAT
     Indication: Autoimmune haemolytic anaemia
  3. HEPARIN SODIUM [Suspect]
     Active Substance: HEPARIN SODIUM
     Indication: Haemodialysis
  4. Fesin [Concomitant]
     Indication: Autoimmune haemolytic anaemia
     Dosage: 40 MG, WE
     Route: 042
  5. RITUXIMAB [Concomitant]
     Active Substance: RITUXIMAB
     Indication: Autoimmune haemolytic anaemia
     Dosage: 500 G, 3W
     Route: 041
     Dates: start: 202305
  6. FERRIC CITRATE ANHYDROUS [Concomitant]
     Active Substance: FERRIC CITRATE ANHYDROUS
  7. DARBEPOETIN ALFA [Concomitant]
     Active Substance: DARBEPOETIN ALFA
  8. DARBEPOETIN ALFA [Concomitant]
     Active Substance: DARBEPOETIN ALFA

REACTIONS (4)
  - Medical device site thrombosis [Unknown]
  - Bile duct stone [Unknown]
  - Cholangitis [Unknown]
  - Hospitalisation [Unknown]

NARRATIVE: CASE EVENT DATE: 20230802
